FAERS Safety Report 11790236 (Version 1)
Quarter: 2015Q4

REPORT INFORMATION
  Report Type: Spontaneous
  Country: US (occurrence: None)
  Receive Date: 20151130
  Receipt Date: 20151130
  Transmission Date: 20160305
  Serious: Yes (Other)
  Sender: FDA-Public Use
  Company Number: None

PATIENT
  Age: 63 Year
  Sex: Female

DRUGS (1)
  1. COSENTYX [Suspect]
     Active Substance: SECUKINUMAB
     Indication: PSORIASIS
     Dosage: 150MG Q 4 WEEKS SC
     Route: 058
     Dates: start: 20150530

REACTIONS (3)
  - Conjunctivitis [None]
  - Blood pressure increased [None]
  - Visual impairment [None]

NARRATIVE: CASE EVENT DATE: 20151028
